FAERS Safety Report 5857844-9 (Version None)
Quarter: 2008Q3

REPORT INFORMATION
  Report Type: 
  Country: None (occurrence: None)
  Receive Date: 20080818
  Receipt Date: 20080606
  Transmission Date: 20090109
  Serious: No
  Sender: FDA-Public Use
  Company Number: WAES 0806USA01383

PATIENT
  Age: 68 Year
  Sex: Female

DRUGS (4)
  1. JANUVIA [Suspect]
     Indication: TYPE 2 DIABETES MELLITUS
     Dosage: 50 MG/DAILY/PO ; 25 MG/DAILY/PO
     Route: 048
     Dates: start: 20071001, end: 20080401
  2. JANUVIA [Suspect]
     Indication: TYPE 2 DIABETES MELLITUS
     Dosage: 50 MG/DAILY/PO ; 25 MG/DAILY/PO
     Route: 048
     Dates: start: 20080401
  3. POTASSIUM (UNSPECIFIED) [Concomitant]
  4. VITAMINS (UNSPECIFIED) [Concomitant]

REACTIONS (3)
  - BACK PAIN [None]
  - DYSURIA [None]
  - PRURITUS [None]
